FAERS Safety Report 5524834-5 (Version None)
Quarter: 2007Q4

REPORT INFORMATION
  Report Type: 
  Country: None (occurrence: None)
  Receive Date: 20071126
  Receipt Date: 20071123
  Transmission Date: 20080405
  Serious: Yes (Death, Other)
  Sender: FDA-Public Use
  Company Number: PHBS2007TH19697

PATIENT
  Age: 42 Year
  Sex: Female

DRUGS (1)
  1. ZOMETA [Suspect]
     Indication: BREAST CANCER METASTATIC
     Dosage: 4 MG MONTLYUNK, UNK
     Route: 042

REACTIONS (11)
  - BONE DEBRIDEMENT [None]
  - BONE DISORDER [None]
  - DISEASE PROGRESSION [None]
  - IMPAIRED HEALING [None]
  - INFLAMMATION [None]
  - MUCOSAL ULCERATION [None]
  - OSTEONECROSIS [None]
  - OTOPLASTY [None]
  - PURULENCE [None]
  - TOOTH DISCOLOURATION [None]
  - TOOTH EXTRACTION [None]
